FAERS Safety Report 5205093-X (Version None)
Quarter: 2007Q1

REPORT INFORMATION
  Report Type: 
  Country: None (occurrence: None)
  Receive Date: 20070110
  Receipt Date: 20061027
  Transmission Date: 20070707
  Serious: No
  Sender: FDA-Public Use
  Company Number: US-BRISTOL-MYERS SQUIBB COMPANY-13558572

PATIENT
  Age: 31 Year
  Sex: Female

DRUGS (5)
  1. ABILIFY [Suspect]
     Indication: SCHIZOPHRENIA, PARANOID TYPE
  2. CLOZARIL [Concomitant]
  3. LEXAPRO [Concomitant]
  4. DEPAKOTE [Concomitant]
  5. TOPAMAX [Concomitant]

REACTIONS (1)
  - ENURESIS [None]
